FAERS Safety Report 5646981-X (Version None)
Quarter: 2008Q1

REPORT INFORMATION
  Report Type: 
  Country: None (occurrence: None)
  Receive Date: 20080303
  Receipt Date: 20080225
  Transmission Date: 20080703
  Serious: Yes (Hospitalization)
  Sender: FDA-Public Use
  Company Number: B0506346A

PATIENT
  Age: 30 Year
  Sex: Female

DRUGS (1)
  1. RELENZA [Suspect]
     Indication: DRUG USE FOR UNKNOWN INDICATION
     Dosage: 10MG TWICE PER DAY
     Route: 055
     Dates: start: 20080129, end: 20080130

REACTIONS (5)
  - BODY TEMPERATURE DECREASED [None]
  - DYSPHONIA [None]
  - DYSPNOEA [None]
  - PHARYNGEAL LESION [None]
  - PHARYNGOLARYNGEAL PAIN [None]
